FAERS Safety Report 6964865-1 (Version None)
Quarter: 2010Q3

REPORT INFORMATION
  Report Type: 
  Country: None (occurrence: None)
  Receive Date: 20100903
  Receipt Date: 20100824
  Transmission Date: 20110219
  Serious: Yes (Death, Other)
  Sender: FDA-Public Use
  Company Number: MX-GENZYME-CLOF-1001142

PATIENT
  Sex: Female
  Weight: 18.5 kg

DRUGS (8)
  1. CLOLAR [Suspect]
     Indication: ACUTE LYMPHOCYTIC LEUKAEMIA
     Dosage: 40 MG/M2, QDX5
     Dates: start: 20090521, end: 20090525
  2. CLOLAR [Suspect]
     Dosage: 40 MG/M2, QDX5
     Route: 042
  3. CLOLAR [Suspect]
     Dosage: 40 MG/M2, QDX5
  4. ETOPOSIDE [Suspect]
     Indication: ACUTE LYMPHOCYTIC LEUKAEMIA
     Dosage: 74 MG, QDX5
     Route: 042
     Dates: start: 20090521, end: 20090525
  5. CYCLOPHOSPHAMIDE [Suspect]
     Indication: ACUTE LYMPHOCYTIC LEUKAEMIA
     Dosage: 300 MG, QDX5
     Route: 042
     Dates: start: 20090521, end: 20090525
  6. NEUPOGEN [Concomitant]
     Indication: PRODUCT USED FOR UNKNOWN INDICATION
     Dosage: 60 MCG, QD
     Route: 058
     Dates: start: 20090526, end: 20090620
  7. PREDNISONE [Concomitant]
     Indication: PRODUCT USED FOR UNKNOWN INDICATION
     Dosage: UNK
  8. MESNA [Concomitant]
     Indication: PRODUCT USED FOR UNKNOWN INDICATION
     Dosage: UNK

REACTIONS (4)
  - APLASIA [None]
  - INFECTION [None]
  - PNEUMONIA [None]
  - VARICELLA [None]
